FAERS Safety Report 8196522-0 (Version None)
Quarter: 2012Q1

REPORT INFORMATION
  Report Type: 
  Country: None (occurrence: None)
  Receive Date: 20120309
  Receipt Date: 20120228
  Transmission Date: 20120608
  Serious: Yes (Death)
  Sender: FDA-Public Use
  Company Number: JP-AMGEN-JPNCT2010005261

PATIENT
  Age: 62 Year
  Sex: Male
  Weight: 60 kg

DRUGS (25)
  1. FLUOROURACIL [Suspect]
     Dosage: 2400 MG/M2, Q2WK
     Route: 041
     Dates: start: 20101008, end: 20101024
  2. CORTICOSTEROIDS [Concomitant]
     Indication: PROPHYLAXIS
     Route: 065
  3. KERATINAMIN KOWA [Concomitant]
     Dosage: UNK
     Route: 062
     Dates: start: 20100827, end: 20101022
  4. ISOSORBIDE MONONITRATE [Concomitant]
     Indication: ANGINA PECTORIS
     Route: 048
  5. PANITUMUMAB [Suspect]
     Indication: COLORECTAL CANCER METASTATIC
     Dosage: 6 MG/KG, Q2WK
     Route: 041
     Dates: start: 20100730, end: 20100910
  6. FLUOROURACIL [Suspect]
     Dosage: 400 MG/M2, Q2WK
     Route: 040
     Dates: start: 20101008, end: 20101024
  7. RESTAMIN [Concomitant]
     Dosage: 50 MG, QD
     Route: 048
     Dates: start: 20100702, end: 20101022
  8. DECADRON [Concomitant]
     Indication: PROPHYLAXIS OF NAUSEA AND VOMITING
     Route: 042
     Dates: start: 20100702, end: 20101022
  9. ZOLPIDEM [Concomitant]
     Indication: INSOMNIA
     Route: 048
  10. LEVOLEUCOVORIN CALCIUM [Suspect]
     Indication: COLORECTAL CANCER
     Dosage: 200 MG/KG, Q2WK
     Route: 041
     Dates: start: 20100730, end: 20100923
  11. MUCOSTA [Concomitant]
     Indication: GASTRITIS
     Route: 048
  12. FLUOROURACIL [Suspect]
     Indication: COLORECTAL CANCER
     Dosage: 400 MG/M2, Q2WK
     Route: 040
     Dates: start: 20100730, end: 20100923
  13. FLUOROURACIL [Suspect]
     Dosage: 2400 MG/M2, Q2WK
     Route: 041
     Dates: start: 20100730, end: 20100923
  14. EMEND [Concomitant]
     Indication: PROPHYLAXIS OF NAUSEA AND VOMITING
     Route: 048
     Dates: start: 20100702, end: 20101022
  15. PANITUMUMAB [Suspect]
     Dosage: 6 MG/KG, Q2WK
     Route: 041
     Dates: start: 20101008, end: 20101022
  16. OXALIPLATIN [Suspect]
     Indication: COLORECTAL CANCER
     Dosage: 85 MG/M2, Q2WK
     Route: 041
     Dates: start: 20100730, end: 20100923
  17. BETAMETHASONE [Concomitant]
     Indication: ALLERGY PROPHYLAXIS
     Route: 048
     Dates: start: 20100702, end: 20101022
  18. ANTIHISTAMINES [Concomitant]
     Indication: PROPHYLAXIS
     Route: 065
  19. BISOPROLOL FUMARATE [Concomitant]
     Indication: HYPERTENSION
     Route: 048
  20. CRESTOR [Concomitant]
     Indication: HYPERLIPIDAEMIA
     Route: 048
  21. OXALIPLATIN [Suspect]
     Dosage: 85 MG/M2, Q2WK
     Route: 041
     Dates: start: 20101008, end: 20101024
  22. LEVOLEUCOVORIN CALCIUM [Suspect]
     Dosage: 200 MG/M2, Q2WK
     Route: 041
     Dates: start: 20101008, end: 20101024
  23. FAMOTIDINE [Concomitant]
     Indication: ALLERGY PROPHYLAXIS
     Dosage: 10 MG, UNK
     Route: 048
     Dates: start: 20100702, end: 20101022
  24. KYTRIL [Concomitant]
     Indication: PROPHYLAXIS OF NAUSEA AND VOMITING
     Route: 042
     Dates: start: 20100702, end: 20101022
  25. AMLODIPINE [Concomitant]
     Indication: HYPERTENSION
     Route: 048

REACTIONS (19)
  - MULTI-ORGAN FAILURE [None]
  - PULMONARY FIBROSIS [None]
  - BLOOD PRESSURE DECREASED [None]
  - STOMATITIS [None]
  - HYPERKALAEMIA [None]
  - NEISSERIA TEST POSITIVE [None]
  - CARDIAC ARREST [None]
  - RASH [None]
  - HAEMODIALYSIS [None]
  - PNEUMONIA VIRAL [None]
  - INTERSTITIAL LUNG DISEASE [None]
  - STAPHYLOCOCCUS TEST POSITIVE [None]
  - PARONYCHIA [None]
  - PLATELET COUNT DECREASED [None]
  - ANURIA [None]
  - BRONCHIECTASIS [None]
  - DISSEMINATED INTRAVASCULAR COAGULATION [None]
  - STREPTOCOCCUS TEST POSITIVE [None]
  - DIFFUSE ALVEOLAR DAMAGE [None]
